FAERS Safety Report 8122523-4 (Version None)
Quarter: 2012Q1

REPORT INFORMATION
  Report Type: 
  Country: None (occurrence: None)
  Receive Date: 20120207
  Receipt Date: 20120207
  Transmission Date: 20120608
  Serious: Yes (Hospitalization)
  Sender: FDA-Public Use
  Company Number: None

PATIENT
  Sex: Female
  Weight: 27.7 kg

DRUGS (1)
  1. KINERET [Suspect]
     Indication: CRYOPYRIN ASSOCIATED PERIODIC SYNDROME
     Dosage: 1.5MG/KG/DAY DAILY SC
     Route: 058

REACTIONS (8)
  - OPTIC DISC DISORDER [None]
  - DRUG EFFECT DECREASED [None]
  - C-REACTIVE PROTEIN INCREASED [None]
  - RED BLOOD CELL SEDIMENTATION RATE INCREASED [None]
  - VITREOUS OPACITIES [None]
  - EYE PAIN [None]
  - ATROPHY OF GLOBE [None]
  - DEVICE MATERIAL OPACIFICATION [None]
